FAERS Safety Report 12913588 (Version 1)
Quarter: 2016Q4

REPORT INFORMATION
  Report Type: Spontaneous
  Country: US (occurrence: US)
  Receive Date: 20161104
  Receipt Date: 20161104
  Transmission Date: 20170207
  Serious: Yes (Hospitalization, Other)
  Sender: FDA-Public Use
  Company Number: US-BAUSCH-BL-2016-026816

PATIENT
  Age: 87 Year
  Sex: Male

DRUGS (1)
  1. XENAZINE [Suspect]
     Active Substance: TETRABENAZINE
     Indication: CHOREA
     Route: 048

REACTIONS (6)
  - Cholecystitis infective [Recovering/Resolving]
  - Pain [Recovering/Resolving]
  - Cholecystitis [Recovering/Resolving]
  - Pancreatitis [Recovering/Resolving]
  - Gallbladder necrosis [Recovering/Resolving]
  - Dysphagia [Recovering/Resolving]

NARRATIVE: CASE EVENT DATE: 20161003
